FAERS Safety Report 11076012 (Version 1)
Quarter: 2015Q2

REPORT INFORMATION
  Report Type: Spontaneous
  Country: FR (occurrence: FR)
  Receive Date: 20150429
  Receipt Date: 20150429
  Transmission Date: 20150821
  Serious: Yes (Life-Threatening, Other)
  Sender: FDA-Public Use
  Company Number: FR-PFIZER INC-2015141521

PATIENT
  Age: 72 Year
  Sex: Female

DRUGS (3)
  1. DALACINE [Suspect]
     Active Substance: CLINDAMYCIN HYDROCHLORIDE
     Dosage: 600 MG, UNK
     Route: 042
     Dates: start: 20150326, end: 20150326
  2. DALACINE [Suspect]
     Active Substance: CLINDAMYCIN HYDROCHLORIDE
     Dosage: 600 MG, UNK
     Route: 042
     Dates: start: 20150327, end: 20150327
  3. DALACINE [Suspect]
     Active Substance: CLINDAMYCIN HYDROCHLORIDE
     Dosage: 600 MG, UNK
     Route: 042
     Dates: start: 20150327, end: 20150327

REACTIONS (5)
  - Hypovolaemic shock [Recovered/Resolved]
  - Acute kidney injury [Recovering/Resolving]
  - Oedema peripheral [Recovered/Resolved]
  - Oxygen saturation decreased [Recovered/Resolved]
  - Urticaria [Recovered/Resolved]

NARRATIVE: CASE EVENT DATE: 20150327
